FAERS Safety Report 25876296 (Version 1)
Quarter: 2025Q4

REPORT INFORMATION
  Report Type: Report from Study
  Country: US (occurrence: US)
  Receive Date: 20251003
  Receipt Date: 20251003
  Transmission Date: 20260118
  Serious: Yes (Other)
  Sender: JOHNSON AND JOHNSON
  Company Number: US-JNJFOC-20250944128

PATIENT
  Age: 38 Year
  Sex: Female

DRUGS (3)
  1. SPRAVATO [Suspect]
     Active Substance: ESKETAMINE
     Indication: Depression
     Dosage: ^56 MG. 1 TOTAL DOSE^
     Route: 045
     Dates: start: 20250623, end: 20250623
  2. SPRAVATO [Suspect]
     Active Substance: ESKETAMINE
     Dosage: ^84 MG. 13 TOTAL DOSES^
     Route: 045
     Dates: start: 20250626, end: 20250916
  3. SPRAVATO [Suspect]
     Active Substance: ESKETAMINE
     Dosage: ^84 MG. 1 TOTAL DOSE, RECENT DOSE^
     Route: 045
     Dates: start: 20250926, end: 20250926

REACTIONS (3)
  - Dissociation [Recovered/Resolved]
  - Nausea [Recovered/Resolved]
  - Vomiting [Recovered/Resolved]

NARRATIVE: CASE EVENT DATE: 20250926
